FAERS Safety Report 6030963-2 (Version None)
Quarter: 2009Q1

REPORT INFORMATION
  Report Type: 
  Country: None (occurrence: None)
  Receive Date: 20090106
  Receipt Date: 20081222
  Transmission Date: 20090719
  Serious: Yes (Other)
  Sender: FDA-Public Use
  Company Number: PI-02802

PATIENT
  Age: 55 Year
  Sex: Female

DRUGS (1)
  1. CHLORAPREP ONE-STEP FREPP [Suspect]
     Indication: PREOPERATIVE CARE
     Dosage: ONE DAY, EXPOSURE
     Dates: start: 20070508

REACTIONS (5)
  - FATIGUE [None]
  - FEELING ABNORMAL [None]
  - NAUSEA [None]
  - OROPHARYNGEAL PAIN [None]
  - SYNCOPE [None]
